FAERS Safety Report 9966152 (Version 1)
Quarter: 2014Q1

REPORT INFORMATION
  Report Type: Report from Study
  Country: US (occurrence: US)
  Receive Date: 20140305
  Receipt Date: 20140305
  Transmission Date: 20141002
  Serious: Yes (Hospitalization)
  Sender: FDA-Public Use
  Company Number: US-ABBVIE-13P-163-1122165-00

PATIENT
  Age: 63 Year
  Sex: Female
  Weight: 61.29 kg

DRUGS (5)
  1. HUMIRA [Suspect]
     Indication: RHEUMATOID ARTHRITIS
     Dates: start: 2006, end: 201301
  2. VITAMIN D [Concomitant]
     Indication: VITAMIN SUPPLEMENTATION
  3. CALCIUM [Concomitant]
     Indication: MINERAL SUPPLEMENTATION
  4. ESCITALOPRAM [Concomitant]
     Indication: DEPRESSION
  5. MIRTAZAPINE [Concomitant]
     Indication: DEPRESSION

REACTIONS (6)
  - Fall [Recovered/Resolved]
  - Hip fracture [Recovered/Resolved]
  - Lower limb fracture [Recovered/Resolved]
  - Wrist fracture [Recovered/Resolved]
  - Fall [Recovering/Resolving]
  - Femur fracture [Recovering/Resolving]
